FAERS Safety Report 8285895-6 (Version None)
Quarter: 2012Q2

REPORT INFORMATION
  Report Type: 
  Country: None (occurrence: None)
  Receive Date: 20120414
  Receipt Date: 20120322
  Transmission Date: 20120825
  Serious: Yes (Other)
  Sender: FDA-Public Use
  Company Number: PHEH2012US005164

PATIENT
  Sex: Male

DRUGS (5)
  1. PRAVASTATIN [Concomitant]
  2. SAXAGLIPTIN [Concomitant]
  3. DIOVAN [Suspect]
     Indication: HYPERTENSION
     Dosage: 80 MG, QD
     Dates: start: 20050708
  4. FAMOTIDINE [Concomitant]
  5. GLYBURIDE [Concomitant]

REACTIONS (1)
  - DIABETES MELLITUS [None]
